APPROVED DRUG PRODUCT: VALPROIC ACID
Active Ingredient: VALPROIC ACID
Strength: 250MG/5ML
Dosage Form/Route: SYRUP;ORAL
Application: A070868 | Product #001
Applicant: PHARMOBEDIENT CONSULTING
Approved: Jul 1, 1986 | RLD: No | RS: No | Type: DISCN